FAERS Safety Report 8268501-6 (Version None)
Quarter: 2012Q1

REPORT INFORMATION
  Report Type: 
  Country: None (occurrence: None)
  Receive Date: 20120327
  Receipt Date: 20090626
  Transmission Date: 20120608
  Serious: Yes (Hospitalization)
  Sender: FDA-Public Use
  Company Number: PHEH2009US06845

PATIENT
  Age: 52 Year
  Sex: Male

DRUGS (2)
  1. RED BLOOD CELLS, CONCENTRATED (RED BLOOD CELLS, CONCENTRATED) [Concomitant]
  2. GLEEVEC [Suspect]
     Indication: CHRONIC MYELOID LEUKAEMIA
     Dosage: 400 MG, QD
     Dates: start: 20090324

REACTIONS (7)
  - CHEST PAIN [None]
  - NAUSEA [None]
  - ABDOMINAL PAIN [None]
  - TREATMENT NONCOMPLIANCE [None]
  - BLOOD DISORDER [None]
  - FATIGUE [None]
  - BACK PAIN [None]
